FAERS Safety Report 11690778 (Version 1)
Quarter: 2015Q4

REPORT INFORMATION
  Report Type: Spontaneous
  Country: SE (occurrence: SE)
  Receive Date: 20151102
  Receipt Date: 20151102
  Transmission Date: 20160304
  Serious: Yes (Disabling)
  Sender: FDA-Public Use
  Company Number: SE-JNJFOC-20151024322

PATIENT
  Age: 74 Year
  Sex: Female

DRUGS (7)
  1. XARELTO [Suspect]
     Active Substance: RIVAROXABAN
     Indication: CEREBROVASCULAR ACCIDENT PROPHYLAXIS
     Route: 048
     Dates: start: 20140917, end: 20150601
  2. TAMBOCOR [Concomitant]
     Active Substance: FLECAINIDE ACETATE
     Route: 065
  3. BISOPROLOL [Concomitant]
     Active Substance: BISOPROLOL
     Route: 065
  4. TAVEGYL [Concomitant]
     Active Substance: CLEMASTINE FUMARATE
     Route: 065
  5. ALVEDON [Concomitant]
     Active Substance: ACETAMINOPHEN
     Route: 065
  6. XARELTO [Suspect]
     Active Substance: RIVAROXABAN
     Indication: ATRIAL FIBRILLATION
     Route: 048
     Dates: start: 20140917, end: 20150601
  7. OMEPRAZOLE. [Concomitant]
     Active Substance: OMEPRAZOLE
     Route: 065

REACTIONS (1)
  - Retinal aneurysm [Not Recovered/Not Resolved]

NARRATIVE: CASE EVENT DATE: 20150420
